FAERS Safety Report 7921958-X (Version None)
Quarter: 2011Q4

REPORT INFORMATION
  Report Type: 
  Country: None (occurrence: None)
  Receive Date: 20111117
  Receipt Date: 20111102
  Transmission Date: 20120403
  Serious: Yes (Other)
  Sender: FDA-Public Use
  Company Number: DE-WATSON-2011-18371

PATIENT
  Age: 78 Year
  Sex: Female

DRUGS (2)
  1. ENALAPRIL MALEATE [Suspect]
     Indication: HYPERTENSION
     Dosage: 5 MG, DAILY
     Route: 048
     Dates: start: 20030101, end: 20080701
  2. DURAGESIC-100 [Suspect]
     Indication: PAIN
     Dosage: UNK
     Route: 062
     Dates: start: 20040901, end: 20051001

REACTIONS (1)
  - DEMENTIA [None]
